FAERS Safety Report 8603064-4 (Version None)
Quarter: 2012Q3

REPORT INFORMATION
  Report Type: 
  Country: None (occurrence: None)
  Receive Date: 20120817
  Receipt Date: 20120717
  Transmission Date: 20120928
  Serious: No
  Sender: FDA-Public Use
  Company Number: US-GLAXOSMITHKLINE-A0985280A

PATIENT
  Age: 63 Year
  Sex: Male
  Weight: 64.5 kg

DRUGS (1)
  1. VOTRIENT [Suspect]
     Indication: LEIOMYOSARCOMA
     Dosage: 800MG PER DAY
     Route: 048
     Dates: start: 20120615

REACTIONS (1)
  - BLOOD PRESSURE INCREASED [None]
